FAERS Safety Report 5340639-2 (Version None)
Quarter: 2007Q2

REPORT INFORMATION
  Report Type: 
  Country: None (occurrence: None)
  Receive Date: 20070405
  Receipt Date: 20061214
  Transmission Date: 20071010
  Serious: No
  Sender: FDA-Public Use
  Company Number: US200612002647

PATIENT
  Age: 44 Year
  Sex: Female

DRUGS (3)
  1. CYMBALTA [Suspect]
     Indication: ANXIETY
     Dosage: 60 MG, DAILY (1/D), ORAL
     Route: 048
     Dates: start: 20061215, end: 20070301
  2. LORAZEPAM [Concomitant]
  3. VANIQA (EFLORNITHINE HYDROCHLORIDE) [Concomitant]

REACTIONS (2)
  - CONSTIPATION [None]
  - PSYCHOMOTOR HYPERACTIVITY [None]
